FAERS Safety Report 7922890-8 (Version None)
Quarter: 2011Q4

REPORT INFORMATION
  Report Type: 
  Country: None (occurrence: None)
  Receive Date: 20111117
  Receipt Date: 20110927
  Transmission Date: 20120403
  Serious: No
  Sender: FDA-Public Use
  Company Number: US-ALLERGAN-1112814US

PATIENT
  Age: 55 Year
  Sex: Male
  Weight: 77.098 kg

DRUGS (2)
  1. LASTACAFT [Suspect]
     Indication: SEASONAL ALLERGY
     Dosage: 1 GTT, QD
     Route: 047
     Dates: start: 20110816, end: 20110916
  2. LASTACAFT [Suspect]
     Dosage: UNK
     Dates: start: 20110924, end: 20110926

REACTIONS (1)
  - EYE INFECTION BACTERIAL [None]
